FAERS Safety Report 11792490 (Version 1)
Quarter: 2015Q4

REPORT INFORMATION
  Report Type: Spontaneous
  Country: US (occurrence: US)
  Receive Date: 20151202
  Receipt Date: 20151202
  Transmission Date: 20160305
  Serious: No
  Sender: FDA-Public Use
  Company Number: US-GLENMARK PHARMACEUTICALS INC, USA.-2015GMK015695

PATIENT

DRUGS (1)
  1. OXCARBAZEPINE. [Suspect]
     Active Substance: OXCARBAZEPINE
     Indication: SEIZURE
     Dosage: 1 DF, TID
     Route: 048
     Dates: start: 201506

REACTIONS (2)
  - Anxiety [Not Recovered/Not Resolved]
  - Product substitution issue [None]

NARRATIVE: CASE EVENT DATE: 20150320
